FAERS Safety Report 17635526 (Version 1)
Quarter: 2020Q2

REPORT INFORMATION
  Report Type: Report from Study
  Country: ES (occurrence: ES)
  Receive Date: 20200407
  Receipt Date: 20200407
  Transmission Date: 20200713
  Serious: Yes (Life-Threatening)
  Sender: FDA-Public Use
  Company Number: ES-TEVA-2020-ES-1219358

PATIENT
  Age: 55 Year
  Sex: Male

DRUGS (6)
  1. CITARABINA (124A) [Interacting]
     Active Substance: CYTARABINE
     Indication: DIFFUSE LARGE B-CELL LYMPHOMA STAGE IV
     Dosage: 8.52 MG
     Route: 042
     Dates: start: 20190913, end: 20191011
  2. CISPLATINO (644A) [Interacting]
     Active Substance: CISPLATIN
     Indication: DIFFUSE LARGE B-CELL LYMPHOMA STAGE IV
     Dosage: 426.4 MG
     Route: 042
     Dates: start: 20190909, end: 20191007
  3. RITUXIMAB (2814A) [Interacting]
     Active Substance: RITUXIMAB
     Indication: DIFFUSE LARGE B-CELL LYMPHOMA STAGE IV
     Dosage: 1.6 G
     Route: 042
     Dates: start: 20190909, end: 20191007
  4. METILPREDNISOLONA (888A) [Interacting]
     Active Substance: METHYLPREDNISOLONE
     Indication: DIFFUSE LARGE B-CELL LYMPHOMA STAGE IV
     Dosage: 2 GRAM
     Route: 042
     Dates: start: 20190909, end: 20191007
  5. ONDANSETRON (2575A) [Concomitant]
     Active Substance: ONDANSETRON
     Indication: NAUSEA
     Dosage: 272 MG
     Route: 042
     Dates: start: 20190909, end: 20191013
  6. ETOPOSIDO (518A) [Suspect]
     Active Substance: ETOPOSIDE
     Indication: DIFFUSE LARGE B-CELL LYMPHOMA STAGE IV
     Dosage: 681.6 MG
     Route: 042
     Dates: start: 20190909, end: 20191007

REACTIONS (3)
  - Septic shock [Recovered/Resolved]
  - Proctitis [Recovered/Resolved]
  - Drug interaction [Unknown]

NARRATIVE: CASE EVENT DATE: 20191011
